FAERS Safety Report 8416657-4 (Version None)
Quarter: 2012Q2

REPORT INFORMATION
  Report Type: 
  Country: None (occurrence: None)
  Receive Date: 20120606
  Receipt Date: 20120531
  Transmission Date: 20120825
  Serious: Yes (Hospitalization)
  Sender: FDA-Public Use
  Company Number: US-ALEXION PHARMACEUTICALS INC.-A201201040

PATIENT
  Sex: Female

DRUGS (6)
  1. AMLODIPINE [Concomitant]
     Dosage: UNK
  2. DULOXETIME HYDROCHLORIDE [Concomitant]
     Dosage: UNK
  3. SOLIRIS [Suspect]
     Indication: HAEMOLYTIC URAEMIC SYNDROME
     Dosage: 900 MG, Q2W
     Route: 042
  4. PROTONIX [Concomitant]
     Dosage: UNK
  5. CARVEDILOL [Concomitant]
     Dosage: UNK
  6. OXYCODONE HYDROCHLORIDE [Concomitant]
     Dosage: UNK

REACTIONS (4)
  - HEADACHE [None]
  - STAPHYLOCOCCAL SEPSIS [None]
  - ACINETOBACTER BACTERAEMIA [None]
  - PAIN IN EXTREMITY [None]
